FAERS Safety Report 5034534-6 (Version None)
Quarter: 2006Q2

REPORT INFORMATION
  Report Type: 
  Country: None (occurrence: None)
  Receive Date: 20060621
  Receipt Date: 20060609
  Transmission Date: 20061013
  Serious: Yes (Hospitalization)
  Sender: FDA-Public Use
  Company Number: 2006074169

PATIENT
  Age: 66 Year
  Sex: Female

DRUGS (7)
  1. DEXTROMETHORPHAN, GUAIFENESIN  (DEXTROMETHORPHAN, GUAIFENESIN) [Suspect]
     Indication: EUPHORIC MOOD
     Dosage: 4 TO 16 OZ ON A REGULAR BASIS, ORAL
     Route: 048
  2. ASPIRIN [Concomitant]
  3. SALBUTAMOL (SALBUTAMOL) [Concomitant]
  4. GALENIC /FLUTICASONE/SALMETEROL/(FLUTICASONE) [Concomitant]
  5. MONTELUKAST (MONTELUKAST) [Concomitant]
  6. PANTOPRAZOLE SODIUM [Concomitant]
  7. CALCIUM WITH VITAMIN D (CALCIUM PHOSPHATE, CALCIUM SODIUM LACTATE, ERG [Concomitant]

REACTIONS (13)
  - ABDOMINAL PAIN UPPER [None]
  - DEPRESSION [None]
  - DRUG DEPENDENCE [None]
  - DRUG SCREEN FALSE POSITIVE [None]
  - DRUG WITHDRAWAL SYNDROME [None]
  - DYSPHORIA [None]
  - EUPHORIC MOOD [None]
  - INSOMNIA [None]
  - LETHARGY [None]
  - NAUSEA [None]
  - RHONCHI [None]
  - TREMOR [None]
  - VOMITING [None]
